FAERS Safety Report 9018628 (Version 3)
Quarter: 2013Q1

REPORT INFORMATION
  Report Type: Spontaneous
  Country: US (occurrence: US)
  Receive Date: 20130118
  Receipt Date: 20130313
  Transmission Date: 20140127
  Serious: Yes (Other)
  Sender: FDA-Public Use
  Company Number: US-PFIZER INC-2013020452

PATIENT
  Age: 48 Year
  Sex: Female

DRUGS (12)
  1. NEURONTIN [Suspect]
     Dosage: 800 MG, 3X/DAY
     Route: 048
  2. SPIRIVA [Suspect]
     Dosage: 18 UG, 1X/DAY
  3. PANTOPRAZOLE SODIUM [Concomitant]
     Dosage: 40 MG, AS NEEDED (1 PO DAILY PRN)
     Route: 048
  4. METAXALONE [Concomitant]
     Dosage: 800 MG, 3X/DAY (1 PO TID)
     Route: 048
  5. CLARITIN-D [Concomitant]
     Dosage: 10-240 MG, 1X/DAY (1 TABLET DAILY)
  6. FLONASE [Concomitant]
     Dosage: 50 UG, 2X/DAY (50MCG/ACT SUSP 2 PUFFS TWICE A DAY
  7. FLONASE [Concomitant]
     Dosage: 50 UG, 2X/DAY (50 MCG/DOSE INHALANT 1 PUFF IN EACH NOSTRIL TWICE DAILY)
     Route: 045
  8. GABAPENTIN [Concomitant]
     Dosage: 600 MG, 3X/DAY
  9. GABAPENTIN [Concomitant]
     Dosage: 800 MG, 3X/DAY
     Dates: start: 201212
  10. WELLBUTRIN [Concomitant]
     Dosage: 100 MG, 2X/DAY
  11. COLACE [Concomitant]
     Dosage: 100 MG, 1X/DAY
  12. SYMBICORT [Concomitant]
     Dosage: 80-4.5 MCG/ACT AERO, 2X/DAY (2 PUFFS TWICE DAILY)

REACTIONS (11)
  - Rheumatoid arthritis [Unknown]
  - Fibromyalgia [Unknown]
  - Lumbar spinal stenosis [Unknown]
  - Chronic obstructive pulmonary disease [Unknown]
  - Depression [Unknown]
  - Asthma [Unknown]
  - Gastrooesophageal reflux disease [Unknown]
  - Sinus headache [Unknown]
  - Rhinitis allergic [Unknown]
  - Tobacco abuse [Unknown]
  - Neuralgia [Unknown]
